FAERS Safety Report 20209075 (Version 5)
Quarter: 2022Q1

REPORT INFORMATION
  Report Type: Report from Study
  Country: RU (occurrence: RU)
  Receive Date: 20211220
  Receipt Date: 20220204
  Transmission Date: 20220423
  Serious: Yes (Other)
  Sender: FDA-Public Use
  Company Number: RU-SERVIER-S21011930

PATIENT

DRUGS (27)
  1. PEGASPARGASE [Suspect]
     Active Substance: PEGASPARGASE
     Indication: B-cell type acute leukaemia
     Dosage: 4000 IU (2500 IU/M?), ON DAY 3 DURING THE INDUCTION PHASE
     Route: 042
     Dates: start: 20211015, end: 20211015
  2. TN UNSPECIFIED [Concomitant]
     Indication: B-cell type acute leukaemia
     Dosage: 1 MG, BID
     Route: 051
     Dates: start: 20211013, end: 20211013
  3. TN UNSPECIFIED [Concomitant]
     Dosage: 2 MG, BID
     Route: 051
     Dates: start: 20211014, end: 20211014
  4. TN UNSPECIFIED [Concomitant]
     Dosage: 3 MG, BID
     Route: 048
     Dates: start: 20211015, end: 20211015
  5. TN UNSPECIFIED [Concomitant]
     Dosage: 4 MG, BID
     Route: 048
     Dates: start: 20211016, end: 20211016
  6. TN UNSPECIFIED [Concomitant]
     Dosage: 9.5 MG, BID
     Route: 048
     Dates: start: 20211017, end: 20211018
  7. TN UNSPECIFIED [Concomitant]
     Dosage: 9.48 MG, QD
     Route: 048
     Dates: start: 20211123, end: 20211125
  8. TN UNSPECIFIED [Concomitant]
     Indication: B-cell type acute leukaemia
     Dosage: 12 MG, DAILY
     Route: 037
     Dates: start: 20211007, end: 20211007
  9. TN UNSPECIFIED [Concomitant]
     Dosage: 12 MG, DAILY
     Route: 037
     Dates: start: 20211123, end: 20211123
  10. TN UNSPECIFIED [Concomitant]
     Indication: B-cell type acute leukaemia
     Dosage: 50 MG, DAILY
     Route: 037
     Dates: start: 20211007, end: 20211007
  11. TN UNSPECIFIED [Concomitant]
     Dosage: 50 MG, DAILY
     Route: 037
     Dates: start: 20211123, end: 20211123
  12. TN UNSPECIFIED [Concomitant]
     Indication: B-cell type acute leukaemia
     Dosage: 10 MG, DAILY
     Route: 037
     Dates: start: 20211007, end: 20211007
  13. TN UNSPECIFIED [Concomitant]
     Dosage: 30 MG, DAILY
     Route: 051
     Dates: start: 20211015, end: 20211015
  14. TN UNSPECIFIED [Concomitant]
     Indication: B-cell type acute leukaemia
     Dosage: 71 MG, QD
     Route: 037
     Dates: start: 20211123, end: 20211123
  15. TN UNSPECIFIED [Concomitant]
     Indication: B-cell type acute leukaemia
     Dosage: 2 MG, QD
     Route: 037
     Dates: start: 20211123, end: 20211123
  16. COTRIMOXAZOLE [Concomitant]
     Active Substance: SULFAMETHOXAZOLE\TRIMETHOPRIM
     Indication: Pneumocystis jirovecii pneumonia
     Dosage: 480 MG, BID
     Route: 048
     Dates: start: 20211007, end: 20211125
  17. COTRIMOXAZOLE [Concomitant]
     Active Substance: SULFAMETHOXAZOLE\TRIMETHOPRIM
     Indication: Prophylaxis
  18. TN UNSPECIFIED [Concomitant]
     Indication: Stomatitis
     Dosage: 1 DF, TID
     Route: 048
     Dates: start: 20210925, end: 20211125
  19. TN UNSPECIFIED [Concomitant]
     Indication: Prophylaxis
  20. TN UNSPECIFIED [Concomitant]
     Indication: Tumour lysis syndrome
     Dosage: 150 MG, TID
     Route: 048
     Dates: start: 20211013, end: 20211019
  21. TN UNSPECIFIED [Concomitant]
     Indication: Prophylaxis
  22. TN UNSPECIFIED [Concomitant]
     Indication: Infection prophylaxis
     Dosage: 2 G, TID
     Route: 051
     Dates: start: 20211006, end: 20211020
  23. ALUMINUM PHOSPHATE [Concomitant]
     Active Substance: ALUMINUM PHOSPHATE
     Indication: Gastritis prophylaxis
     Dosage: 16 G, TID
     Route: 048
     Dates: start: 20211013, end: 20211021
  24. LASIX [Concomitant]
     Active Substance: FUROSEMIDE
     Indication: Oliguria
     Dosage: 15 MG, BID
     Route: 051
     Dates: start: 20211014, end: 20211019
  25. LASIX [Concomitant]
     Active Substance: FUROSEMIDE
     Indication: Prophylaxis
  26. Asparcam [Concomitant]
     Indication: Hypokalaemia
     Dosage: 1 DF, BID
     Route: 048
     Dates: start: 20211013, end: 20211021
  27. Asparcam [Concomitant]
     Indication: Prophylaxis

REACTIONS (5)
  - Leukopenia [Recovered/Resolved]
  - Pancreatitis acute [Recovered/Resolved]
  - Pneumonia [Recovered/Resolved]
  - Candida pneumonia [Recovered/Resolved]
  - Febrile neutropenia [Recovered/Resolved]

NARRATIVE: CASE EVENT DATE: 20211018
